FAERS Safety Report 4865093-6 (Version None)
Quarter: 2005Q4

REPORT INFORMATION
  Report Type: 
  Country: None (occurrence: None)
  Receive Date: 20051220
  Receipt Date: 20051220
  Transmission Date: 20060501
  Serious: Yes (Other)
  Sender: FDA-Public Use
  Company Number: None

PATIENT
  Sex: Female
  Weight: 102.1 kg

DRUGS (2)
  1. PACLITAXEL [Suspect]
     Indication: BREAST CANCER
     Dosage: SEE IMAGE
     Route: 042
     Dates: start: 20051007, end: 20051021
  2. DECADRON [Suspect]
     Dosage: SEE IMAGE
     Route: 048
     Dates: start: 20051007

REACTIONS (1)
  - BLOOD GLUCOSE INCREASED [None]
